FAERS Safety Report 20407224 (Version 3)
Quarter: 2022Q2

REPORT INFORMATION
  Report Type: Spontaneous
  Country: US (occurrence: US)
  Receive Date: 20220131
  Receipt Date: 20220624
  Transmission Date: 20220721
  Serious: Yes (Other)
  Sender: FDA-Public Use
  Company Number: US-PFIZER INC-202101706159

PATIENT
  Age: 54 Year
  Sex: Female

DRUGS (1)
  1. XELJANZ XR [Suspect]
     Active Substance: TOFACITINIB CITRATE
     Dosage: 11 MG

REACTIONS (12)
  - Haemorrhage [Unknown]
  - Jaw operation [Unknown]
  - Illness [Unknown]
  - Fall [Unknown]
  - Sleep disorder [Unknown]
  - Thinking abnormal [Unknown]
  - Stress [Unknown]
  - Migraine [Unknown]
  - Metamorphopsia [Unknown]
  - Dizziness [Unknown]
  - Infection [Unknown]
  - Anxiety [Unknown]
